FAERS Safety Report 6358496-4 (Version None)
Quarter: 2009Q3

REPORT INFORMATION
  Report Type: 
  Country: None (occurrence: None)
  Receive Date: 20090916
  Receipt Date: 20090914
  Transmission Date: 20100115
  Serious: Yes (Hospitalization, Other)
  Sender: FDA-Public Use
  Company Number: US-BAYER-200914136BCC

PATIENT
  Age: 74 Year
  Sex: Female

DRUGS (5)
  1. ASPIRIN [Suspect]
     Indication: DRUG USE FOR UNKNOWN INDICATION
     Route: 065
  2. PLAVIX [Suspect]
     Indication: DRUG USE FOR UNKNOWN INDICATION
     Route: 048
  3. BLOOD PRESSURE MEDICATION [Concomitant]
     Route: 065
  4. PROTONIX [Concomitant]
     Route: 065
  5. STATIN [Concomitant]
     Route: 065

REACTIONS (3)
  - ATRIAL FIBRILLATION [None]
  - EMBOLIC STROKE [None]
  - HAEMORRHAGE INTRACRANIAL [None]
